FAERS Safety Report 10457085 (Version 2)
Quarter: 2014Q4

REPORT INFORMATION
  Report Type: Report from Study
  Country: DE (occurrence: DE)
  Receive Date: 20140916
  Receipt Date: 20141017
  Transmission Date: 20150528
  Serious: Yes (Death, Life-Threatening)
  Sender: FDA-Public Use
  Company Number: DE-B.I. PHARMACEUTICALS,INC./RIDGEFIELD-2014-BI-43103DE

PATIENT
  Age: 62 Year
  Sex: Male
  Weight: 75 kg

DRUGS (4)
  1. PRADAXA [Suspect]
     Active Substance: DABIGATRAN ETEXILATE MESYLATE
     Indication: CARDIAC ANEURYSM
  2. PRADAXA [Suspect]
     Active Substance: DABIGATRAN ETEXILATE MESYLATE
     Indication: TYPE 1 DIABETES MELLITUS
  3. PRADAXA [Suspect]
     Active Substance: DABIGATRAN ETEXILATE MESYLATE
     Indication: MYOCARDIAL INFARCTION
     Dosage: 300 MG
     Route: 065
     Dates: start: 20111215
  4. PRADAXA [Suspect]
     Active Substance: DABIGATRAN ETEXILATE MESYLATE
     Indication: CORONARY ARTERY DISEASE

REACTIONS (4)
  - Off label use [Unknown]
  - Ventricular fibrillation [Unknown]
  - Sudden cardiac death [Fatal]
  - Pharyngeal haemorrhage [Unknown]

NARRATIVE: CASE EVENT DATE: 20120808
